FAERS Safety Report 11862334 (Version 1)
Quarter: 2015Q4

REPORT INFORMATION
  Report Type: Spontaneous
  Country: US (occurrence: None)
  Receive Date: 20151222
  Receipt Date: 20151222
  Transmission Date: 20160305
  Serious: Yes (Hospitalization)
  Sender: FDA-Public Use
  Company Number: None

PATIENT
  Age: 35 Year
  Sex: Female

DRUGS (2)
  1. PLEGRIDY [Suspect]
     Active Substance: PEGINTERFERON BETA-1A
     Indication: MULTIPLE SCLEROSIS
     Dosage: 63 MCG/94 MCG ON DAY 1/ON DAY 15
     Route: 058
     Dates: start: 20151105, end: 20151119
  2. PLEGRIDY [Suspect]
     Active Substance: PEGINTERFERON BETA-1A
     Indication: MULTIPLE SCLEROSIS
     Dosage: EVERY 14 DAYS
     Route: 058
     Dates: start: 20151203, end: 20151208

REACTIONS (3)
  - Memory impairment [None]
  - Unresponsive to stimuli [None]
  - Seizure [None]

NARRATIVE: CASE EVENT DATE: 20151208
